FAERS Safety Report 21984575 (Version 3)
Quarter: 2023Q1

REPORT INFORMATION
  Report Type: Report from Study
  Country: US (occurrence: US)
  Receive Date: 20230213
  Receipt Date: 20230315
  Transmission Date: 20230417
  Serious: Yes (Other)
  Sender: FDA-Public Use
  Company Number: US-MYLANLABS-202200097972

PATIENT
  Sex: Female

DRUGS (1)
  1. LYRICA [Suspect]
     Active Substance: PREGABALIN
     Indication: Product used for unknown indication
     Dosage: 100 MILLIGRAM, QID (100 MG, 4X/DAY (AS DIRECTED BY PHYSICIAN))
     Route: 048

REACTIONS (6)
  - Neoplasm malignant [Unknown]
  - Emotional disorder [Unknown]
  - Radiation injury [Unknown]
  - COVID-19 [Unknown]
  - Pain [Unknown]
  - Hypoaesthesia [Unknown]
